FAERS Safety Report 24303383 (Version 1)
Quarter: 2024Q3

REPORT INFORMATION
  Report Type: Spontaneous
  Country: FR (occurrence: FR)
  Receive Date: 20240910
  Receipt Date: 20240910
  Transmission Date: 20241016
  Serious: Yes (Other)
  Sender: PFIZER
  Company Number: FR-PFIZER INC-202400251621

PATIENT
  Age: 35 Year
  Sex: Male

DRUGS (1)
  1. CLINDAMYCIN [Suspect]
     Active Substance: CLINDAMYCIN
     Dosage: 900 MG, 3X/DAY

REACTIONS (3)
  - Prescribed overdose [Unknown]
  - Cerebrovascular accident [Unknown]
  - Infection [Unknown]
